FAERS Safety Report 6784803-4 (Version None)
Quarter: 2010Q2

REPORT INFORMATION
  Report Type: 
  Country: None (occurrence: None)
  Receive Date: 20100622
  Receipt Date: 20100614
  Transmission Date: 20101027
  Serious: Yes (Other)
  Sender: FDA-Public Use
  Company Number: PHHY2009JP00852

PATIENT
  Age: 5 Month
  Sex: Female

DRUGS (5)
  1. AREDIA [Suspect]
     Indication: OSTEOGENESIS IMPERFECTA
     Dosage: 0.25 MG/KG, QD
     Dates: start: 20080602
  2. AREDIA [Suspect]
     Dosage: 0.5 MG/KG FOR 2 DAYS
  3. CALCIUM LACTATE [Concomitant]
  4. ALFACALCIDOL [Concomitant]
  5. OXYGEN THERAPY [Concomitant]
     Dosage: UNK

REACTIONS (4)
  - BLOOD ALKALINE PHOSPHATASE INCREASED [None]
  - FRACTURE [None]
  - N-TELOPEPTIDE URINE DECREASED [None]
  - PYREXIA [None]
